FAERS Safety Report 6286545-0 (Version None)
Quarter: 2009Q3

REPORT INFORMATION
  Report Type: 
  Country: None (occurrence: None)
  Receive Date: 20090727
  Receipt Date: 20090727
  Transmission Date: 20100115
  Serious: Yes (Life-Threatening, Hospitalization)
  Sender: FDA-Public Use
  Company Number: None

PATIENT

DRUGS (1)
  1. NAMENDA [Suspect]
     Indication: DEMENTIA ALZHEIMER'S TYPE
     Dates: start: 20090201

REACTIONS (5)
  - FALL [None]
  - HEART RATE DECREASED [None]
  - INJURY [None]
  - LOSS OF CONSCIOUSNESS [None]
  - SYNCOPE [None]
